FAERS Safety Report 8265899-X (Version None)
Quarter: 2012Q2

REPORT INFORMATION
  Report Type: 
  Country: None (occurrence: None)
  Receive Date: 20120406
  Receipt Date: 20120327
  Transmission Date: 20120825
  Serious: Yes (Other)
  Sender: FDA-Public Use
  Company Number: JP-GLAXOSMITHKLINE-B0793610A

PATIENT
  Age: 53 Year
  Sex: Male

DRUGS (6)
  1. CYTARABINE [Suspect]
     Indication: STEM CELL TRANSPLANT
     Route: 065
  2. CYCLOSPORINE [Concomitant]
     Dosage: 3MGK PER DAY
  3. METHOTREXATE [Concomitant]
  4. MELPHALAN HYDROCHLORIDE [Suspect]
     Indication: STEM CELL TRANSPLANT
     Route: 065
  5. TACROLIMUS [Concomitant]
     Dosage: .03MGK PER DAY
  6. FLUDARABINE PHOSPHATE [Suspect]
     Indication: STEM CELL TRANSPLANT
     Route: 065

REACTIONS (8)
  - MENINGITIS VIRAL [None]
  - PNEUMONIA CYTOMEGALOVIRAL [None]
  - CONVULSION [None]
  - STOMATITIS [None]
  - HEPATOTOXICITY [None]
  - GASTROINTESTINAL TOXICITY [None]
  - GRAFT VERSUS HOST DISEASE IN SKIN [None]
  - LOSS OF CONSCIOUSNESS [None]
